FAERS Safety Report 23449119 (Version 2)
Quarter: 2024Q1

REPORT INFORMATION
  Report Type: Report from Study
  Country: CO (occurrence: CO)
  Receive Date: 20240128
  Receipt Date: 20240229
  Transmission Date: 20240410
  Serious: Yes (Other)
  Sender: FDA-Public Use
  Company Number: CO-ABBVIE-5607934

PATIENT
  Age: 27 Year
  Sex: Male

DRUGS (1)
  1. SKYRIZI [Suspect]
     Active Substance: RISANKIZUMAB-RZAA
     Indication: Psoriasis
     Dosage: FORM STRENGTH 75 MILLIGRAM
     Route: 058
     Dates: start: 20220216, end: 20230717

REACTIONS (4)
  - Cutaneous T-cell lymphoma [Unknown]
  - Psoriasis [Unknown]
  - Dermatitis atopic [Unknown]
  - Dermatitis [Unknown]

NARRATIVE: CASE EVENT DATE: 20230101
